FAERS Safety Report 10079934 (Version 1)
Quarter: 2014Q2

REPORT INFORMATION
  Report Type: Spontaneous
  Country: GB (occurrence: GB)
  Receive Date: 20140415
  Receipt Date: 20140415
  Transmission Date: 20141212
  Serious: Yes (Other)
  Sender: FDA-Public Use
  Company Number: PHHY2014GB042417

PATIENT
  Age: 53 Year
  Sex: Male
  Weight: 116.2 kg

DRUGS (7)
  1. CLARITHROMYCIN [Suspect]
  2. BENDROFLUMETHIAZIDE [Concomitant]
     Dates: start: 20140110
  3. CANDESARTAN [Concomitant]
     Dates: start: 20140228
  4. DOXAZOSIN [Concomitant]
     Dates: start: 20140110
  5. PENICILLIN V [Concomitant]
     Dates: start: 20140304, end: 20140314
  6. VALSARTAN [Concomitant]
     Dates: start: 20140110, end: 20140207
  7. AMLODIPINE [Concomitant]
     Dates: start: 20140110

REACTIONS (2)
  - Lethargy [Recovered/Resolved]
  - Depression [Unknown]
